FAERS Safety Report 20788824 (Version 1)
Quarter: 2022Q2

REPORT INFORMATION
  Report Type: Spontaneous
  Country: ES (occurrence: ES)
  Receive Date: 20220505
  Receipt Date: 20220505
  Transmission Date: 20220721
  Serious: Yes (Life-Threatening, Hospitalization)
  Sender: FDA-Public Use
  Company Number: ES-MYLANLABS-2022M1032839

PATIENT
  Age: 69 Year
  Sex: Male

DRUGS (2)
  1. ACYCLOVIR [Suspect]
     Active Substance: ACYCLOVIR
     Indication: Herpes virus infection
     Dosage: UNK
     Route: 042
  2. GANCICLOVIR [Suspect]
     Active Substance: GANCICLOVIR
     Indication: Herpes virus infection
     Dosage: UNK
     Route: 065

REACTIONS (1)
  - Drug ineffective [Unknown]
